FAERS Safety Report 5165654-3 (Version None)
Quarter: 2006Q4

REPORT INFORMATION
  Report Type: 
  Country: None (occurrence: None)
  Receive Date: 20061128
  Receipt Date: 20061122
  Transmission Date: 20070319
  Serious: Yes (Hospitalization)
  Sender: FDA-Public Use
  Company Number: ITWYE600421NOV06

PATIENT
  Age: 38 Year
  Sex: Male

DRUGS (1)
  1. SIROLIMUS (SIROLIMUS, TABLET) [Suspect]
     Indication: PROPHYLAXIS AGAINST TRANSPLANT REJECTION
     Dosage: 4 MG 1X PER 1 DAY
     Route: 048
     Dates: start: 20060505, end: 20060809

REACTIONS (2)
  - DIALYSIS [None]
  - KIDNEY TRANSPLANT REJECTION [None]
